FAERS Safety Report 12446352 (Version 1)
Quarter: 2016Q2

REPORT INFORMATION
  Report Type: Spontaneous
  Country: US (occurrence: None)
  Receive Date: 20160607
  Receipt Date: 20160607
  Transmission Date: 20160815
  Serious: Yes (Disabling)
  Sender: FDA-Public Use
  Company Number: None

PATIENT
  Age: 57 Year
  Sex: Female
  Weight: 51.71 kg

DRUGS (1)
  1. PROLIA [Suspect]
     Active Substance: DENOSUMAB

REACTIONS (2)
  - Urticaria [None]
  - Pruritus [None]

NARRATIVE: CASE EVENT DATE: 20160502
